FAERS Safety Report 16607659 (Version 1)
Quarter: 2019Q3

REPORT INFORMATION
  Report Type: Spontaneous
  Country: US (occurrence: US)
  Receive Date: 20190722
  Receipt Date: 20190722
  Transmission Date: 20191004
  Serious: No
  Sender: FDA-Public Use
  Company Number: US-KYOWAKIRIN-2019BKK011394

PATIENT

DRUGS (10)
  1. FORODESINE [Concomitant]
     Active Substance: FORODESINE
     Indication: CUTANEOUS T-CELL LYMPHOMA STAGE IV
     Dosage: UNKNOWN
     Route: 065
  2. VORINOSTAT [Concomitant]
     Active Substance: VORINOSTAT
     Indication: CUTANEOUS T-CELL LYMPHOMA STAGE IV
     Dosage: UNKNOWN
     Route: 065
  3. POTELIGEO [Suspect]
     Active Substance: MOGAMULIZUMAB-KPKC
     Indication: CUTANEOUS T-CELL LYMPHOMA STAGE IV
     Dosage: UNKNOWN
     Route: 065
  4. PRALATREXATE [Concomitant]
     Active Substance: PRALATREXATE
     Indication: CUTANEOUS T-CELL LYMPHOMA STAGE IV
     Dosage: UNKNOWN
     Route: 065
  5. DENILEUKIN DIFTITOX [Concomitant]
     Active Substance: DENILEUKIN DIFTITOX
     Indication: CUTANEOUS T-CELL LYMPHOMA STAGE IV
     Dosage: UNKNOWN
     Route: 065
  6. ALEMTUZUMAB [Concomitant]
     Active Substance: ALEMTUZUMAB
     Indication: CUTANEOUS T-CELL LYMPHOMA STAGE IV
     Dosage: UNKNOWN
     Route: 065
  7. BEXAROTENE. [Concomitant]
     Active Substance: BEXAROTENE
     Indication: CUTANEOUS T-CELL LYMPHOMA STAGE IV
     Dosage: UNKNOWN
     Route: 065
  8. SAPACITABINE [Concomitant]
     Active Substance: SAPACITABINE
     Indication: CUTANEOUS T-CELL LYMPHOMA STAGE IV
     Dosage: UNKNOWN
     Route: 065
  9. CHLORAMBUCIL [Concomitant]
     Active Substance: CHLORAMBUCIL
     Indication: CUTANEOUS T-CELL LYMPHOMA STAGE IV
     Dosage: UNKNOWN
     Route: 065
  10. METHOTREXATE. [Concomitant]
     Active Substance: METHOTREXATE
     Indication: CUTANEOUS T-CELL LYMPHOMA STAGE IV
     Dosage: UNKNOWN
     Route: 065

REACTIONS (1)
  - Treatment failure [Unknown]
